FAERS Safety Report 4972149-6 (Version None)
Quarter: 2006Q2

REPORT INFORMATION
  Report Type: 
  Country: None (occurrence: None)
  Receive Date: 20060413
  Receipt Date: 20060331
  Transmission Date: 20061013
  Serious: Yes (Death)
  Sender: FDA-Public Use
  Company Number: AU-NOVOPROD-252090

PATIENT
  Age: 68 Year
  Sex: Female
  Weight: 103 kg

DRUGS (5)
  1. NOVOSEVEN [Suspect]
     Indication: HAEMORRHAGE
     Dosage: 2 X 2.4 MG
     Dates: start: 20050425, end: 20050425
  2. BLOOD CELLS, PACKED HUMAN [Concomitant]
     Dosage: 1U BEFORE NOVOSEVEN TREATMENT, 2 U AFTER
  3. FRESH FROZEN PLASMA [Concomitant]
     Dosage: 2 U, BEFORE TREATMENT WITH NOVOSEVEN
  4. PLATELETS [Concomitant]
     Dosage: 1U BEFORE TREATMENT WITH NOVOSEVEN, 1U AFTER
  5. OTHER HAEMATOLOGICAL AGENTS [Concomitant]

REACTIONS (2)
  - COMA [None]
  - MULTI-ORGAN FAILURE [None]
